FAERS Safety Report 8105138-3 (Version None)
Quarter: 2012Q1

REPORT INFORMATION
  Report Type: 
  Country: None (occurrence: None)
  Receive Date: 20120201
  Receipt Date: 20120201
  Transmission Date: 20120608
  Serious: Yes (Hospitalization)
  Sender: FDA-Public Use
  Company Number: CN-BAYER-2012-009846

PATIENT
  Age: 42 Year
  Sex: Female

DRUGS (1)
  1. SARIDON [Suspect]
     Indication: HEADACHE
     Dosage: 1 DF, ONCE
     Route: 048
     Dates: start: 20120101, end: 20120101

REACTIONS (7)
  - HYPERSENSITIVITY [None]
  - PRURITUS [None]
  - MUSCLE TWITCHING [None]
  - FACE OEDEMA [None]
  - DYSPNOEA [None]
  - SHOCK [None]
  - PARAESTHESIA ORAL [None]
